FAERS Safety Report 4529728-X (Version None)
Quarter: 2004Q4

REPORT INFORMATION
  Report Type: 
  Country: None (occurrence: None)
  Receive Date: 20041215
  Receipt Date: 20041215
  Transmission Date: 20050328
  Serious: Yes (Hospitalization)
  Sender: FDA-Public Use
  Company Number: None

PATIENT
  Age: 45 Year
  Sex: Male

DRUGS (6)
  1. SEROQUEL [Suspect]
     Indication: AGITATION
     Dosage: 1 TAB PO BID
     Route: 048
  2. FUROSEMIDE [Concomitant]
  3. SPIRONOLACTONE [Concomitant]
  4. LITHIUM [Concomitant]
  5. LORTAB [Concomitant]
  6. NEOMYCIN [Concomitant]

REACTIONS (2)
  - NAUSEA [None]
  - VOMITING [None]
